FAERS Safety Report 8287124-6 (Version None)
Quarter: 2012Q2

REPORT INFORMATION
  Report Type: 
  Country: None (occurrence: None)
  Receive Date: 20120416
  Receipt Date: 20120403
  Transmission Date: 20120825
  Serious: Yes (Hospitalization)
  Sender: FDA-Public Use
  Company Number: NL-ROCHE-1056416

PATIENT
  Sex: Female
  Weight: 69 kg

DRUGS (7)
  1. DEXAMETHASONE [Concomitant]
     Indication: HYPERSENSITIVITY
     Dosage: DURING CHEMOTHERAPY
     Route: 042
     Dates: start: 20110624, end: 20110624
  2. DOCETAXEL [Suspect]
     Indication: BREAST CANCER
     Dosage: DOSE GIVEN: 140 MG, LAST DOSE PRIOR TO SAE 24/JUN/2011
     Route: 042
     Dates: start: 20110421
  3. XELODA [Suspect]
     Indication: BREAST CANCER
     Dosage: DOSE GIVEN: 1000 MG, 825 MG/M2, 2X/DAY FROM DAYS 1 TO 14, LAST DOSE PRIOR TO SAE 24/JUN/2011
     Route: 048
     Dates: start: 20110421
  4. ATACAND [Concomitant]
     Indication: HYPERTENSION
     Dosage: SCHEDULE : 1DD
     Route: 048
     Dates: start: 20060101
  5. CLEMASTINE FUMARATE [Concomitant]
     Indication: HYPERSENSITIVITY
     Dosage: DURING CHEMOTHERAPY
     Route: 042
     Dates: start: 20110624, end: 20110624
  6. OMEPRAZOLE [Concomitant]
     Indication: GASTRIC PH DECREASED
     Dosage: SCHEDULE : 1DD
     Route: 048
     Dates: start: 20110430, end: 20110825
  7. TRIAMTERENE AND HYDROCHLOROTHIAZIDE [Concomitant]
     Indication: HYPERTENSION
     Dosage: SCHEDULE : 1DD, DOSE: 25/150
     Route: 048
     Dates: start: 20060101

REACTIONS (1)
  - CIRCULATORY COLLAPSE [None]
